FAERS Safety Report 5323633-7 (Version None)
Quarter: 2007Q2

REPORT INFORMATION
  Report Type: 
  Country: None (occurrence: None)
  Receive Date: 20070507
  Receipt Date: 20070430
  Transmission Date: 20071010
  Serious: Yes (Hospitalization)
  Sender: FDA-Public Use
  Company Number: 2007BI006182

PATIENT
  Age: 30 Year
  Sex: Female
  Weight: 108 kg

DRUGS (1)
  1. AVONEX [Suspect]
     Indication: MULTIPLE SCLEROSIS
     Dosage: 30 UG; QW; IM
     Route: 030
     Dates: start: 20061212

REACTIONS (6)
  - CHILLS [None]
  - DISEASE RECURRENCE [None]
  - HEADACHE [None]
  - INFLUENZA LIKE ILLNESS [None]
  - LIGAMENT RUPTURE [None]
  - MUSCLE SPASMS [None]
